FAERS Safety Report 5401116-3 (Version None)
Quarter: 2007Q3

REPORT INFORMATION
  Report Type: 
  Country: None (occurrence: None)
  Receive Date: 20070731
  Receipt Date: 20070725
  Transmission Date: 20080115
  Serious: Yes (Hospitalization, Other)
  Sender: FDA-Public Use
  Company Number: PHEH2007US10412

PATIENT

DRUGS (1)
  1. TRILEPTAL [Suspect]
     Indication: CONVULSION

REACTIONS (3)
  - BLOOD SODIUM DECREASED [None]
  - NEPHRECTOMY [None]
  - SALIVARY GLAND ENLARGEMENT [None]
